FAERS Safety Report 5164376-2 (Version None)
Quarter: 2006Q4

REPORT INFORMATION
  Report Type: 
  Country: None (occurrence: None)
  Receive Date: 20061205
  Receipt Date: 20061108
  Transmission Date: 20070319
  Serious: Yes (Other)
  Sender: FDA-Public Use
  Company Number: JP-NOVOPROD-258496

PATIENT
  Age: 29 Year
  Sex: Female
  Weight: 47 kg

DRUGS (4)
  1. PENFILL R CHU [Suspect]
     Indication: DIABETES MELLITUS MALNUTRITION-RELATED
     Dosage: 10 IU, QD
     Route: 058
  2. PENFILL N CHU [Suspect]
     Indication: DIABETES MELLITUS MALNUTRITION-RELATED
     Dosage: 10 IU, QD
     Route: 058
  3. GASTER [Concomitant]
     Dosage: 20 MG, QD
     Route: 048
  4. AMOBAN [Concomitant]
     Dosage: 1 TAB, QD
     Route: 048

REACTIONS (1)
  - GASTRIC CANCER [None]
